FAERS Safety Report 13369224 (Version 1)
Quarter: 2017Q1

REPORT INFORMATION
  Report Type: Report from Study
  Country: US (occurrence: US)
  Receive Date: 20170324
  Receipt Date: 20170324
  Transmission Date: 20170429
  Serious: Yes (Other)
  Sender: FDA-Public Use
  Company Number: PHEH2017US008050

PATIENT
  Sex: Female

DRUGS (1)
  1. GILENYA [Suspect]
     Active Substance: FINGOLIMOD HYDROCHLORIDE
     Indication: MULTIPLE SCLEROSIS
     Dosage: 0.5 MG, QD
     Route: 048

REACTIONS (9)
  - Multiple sclerosis relapse [Unknown]
  - Sensory loss [Unknown]
  - Sensory disturbance [Unknown]
  - Fear [Unknown]
  - Movement disorder [Unknown]
  - Normal newborn [Unknown]
  - Visual impairment [Unknown]
  - Speech disorder [Unknown]
  - Maternal exposure timing unspecified [Unknown]
